FAERS Safety Report 7812844-4 (Version None)
Quarter: 2011Q4

REPORT INFORMATION
  Report Type: 
  Country: None (occurrence: None)
  Receive Date: 20111013
  Receipt Date: 20111007
  Transmission Date: 20120403
  Serious: Yes (Hospitalization)
  Sender: FDA-Public Use
  Company Number: US-AMGEN-USASP2011052062

PATIENT
  Age: 74 Year
  Sex: Female

DRUGS (4)
  1. ASPIRIN [Concomitant]
  2. SINGULAIR [Concomitant]
  3. ANTIHYPERTENSIVES [Concomitant]
     Indication: HYPERTENSION
  4. PROLIA [Suspect]
     Indication: OSTEOPOROSIS POSTMENOPAUSAL
     Dosage: 60 MG, Q6MO
     Dates: start: 20110901

REACTIONS (8)
  - VERTIGO [None]
  - DEMENTIA [None]
  - INSOMNIA [None]
  - HEADACHE [None]
  - SOMNOLENCE [None]
  - ANXIETY [None]
  - IRRITABILITY [None]
  - NERVOUSNESS [None]
